FAERS Safety Report 13776650 (Version 4)
Quarter: 2020Q3

REPORT INFORMATION
  Report Type: Report from Study
  Country: TH (occurrence: TH)
  Receive Date: 20170721
  Receipt Date: 20180702
  Transmission Date: 20201105
  Serious: Yes (Death, Hospitalization, Other)
  Sender: FDA-Public Use
  Company Number: TH-ASTRAZENECA-2017SE24471

PATIENT
  Age: 20605 Day
  Sex: Female

DRUGS (6)
  1. MEDI4736 [Suspect]
     Active Substance: DURVALUMAB
     Indication: SQUAMOUS CELL CARCINOMA OF HEAD AND NECK
     Route: 042
     Dates: start: 20170201, end: 20170201
  2. TREMELIMUMAB. [Suspect]
     Active Substance: TREMELIMUMAB
     Indication: SQUAMOUS CELL CARCINOMA OF HEAD AND NECK
     Route: 042
     Dates: start: 20170201, end: 20170201
  3. OLIVE OIL [Concomitant]
     Active Substance: OLIVE OIL
     Indication: SCAR
     Dosage: 60MG Q4H (EVERY 4 HOUR)2.0ML AS REQUIRED
     Route: 061
     Dates: start: 20161221
  4. CHLORHEXIDINE [Concomitant]
     Active Substance: CHLORHEXIDINE
     Dosage: 2.0ML AS REQUIRED
     Route: 004
     Dates: start: 20161221
  5. MORPHINE [Concomitant]
     Active Substance: MORPHINE
     Indication: CANCER PAIN
     Dosage: 60MG Q4H (EVERY 4 HOUR)2.0ML AS REQUIRED
     Route: 048
     Dates: start: 20161212
  6. SODIUM BICARBONATE. [Concomitant]
     Active Substance: SODIUM BICARBONATE
     Dosage: 2.0ML AS REQUIRED
     Route: 004
     Dates: start: 20161221

REACTIONS (1)
  - Pneumonitis [Fatal]

NARRATIVE: CASE EVENT DATE: 20170301
